FAERS Safety Report 8769674 (Version 3)
Quarter: 2012Q4

REPORT INFORMATION
  Report Type: 
  Country: SE (occurrence: SE)
  Receive Date: 20120905
  Receipt Date: 20120921
  Transmission Date: 20130627
  Serious: Yes (Other)
  Sender: FDA-Public Use
  Company Number: SE-JNJFOC-20120814962

PATIENT
  Age: 55 Year
  Sex: Female

DRUGS (3)
  1. NICORETTE 2 MG GUM [Suspect]
     Indication: SMOKING CESSATION THERAPY
     Route: 048
     Dates: start: 2003
  2. LEVAXIN [Concomitant]
     Route: 065
  3. EFFEXOR [Concomitant]
     Route: 065

REACTIONS (6)
  - Nicotine dependence [Not Recovered/Not Resolved]
  - Incorrect drug administration duration [Unknown]
  - Anxiety [Unknown]
  - Restless legs syndrome [Unknown]
  - Paraesthesia [Unknown]
  - Panic disorder [Unknown]
